FAERS Safety Report 17828932 (Version 10)
Quarter: 2022Q1

REPORT INFORMATION
  Report Type: Spontaneous
  Country: US (occurrence: US)
  Receive Date: 20200527
  Receipt Date: 20220201
  Transmission Date: 20220423
  Serious: Yes (Hospitalization, Other)
  Sender: FDA-Public Use
  Company Number: US-VERTEX PHARMACEUTICALS-2020-011414

PATIENT
  Sex: Female

DRUGS (2)
  1. TRIKAFTA [Suspect]
     Active Substance: ELEXACAFTOR\IVACAFTOR\TEZACAFTOR
     Indication: Cystic fibrosis
     Dosage: 2 ORANGE TABS (100MG ELEXA/50MG TEZA/75MG IVA) AM AND 1 BLUE TAB (150MG IVA) PM
     Route: 048
     Dates: start: 20200512, end: 2020
  2. TRIKAFTA [Suspect]
     Active Substance: ELEXACAFTOR\IVACAFTOR\TEZACAFTOR
     Dosage: 100 MG ELEXACAFTOR/ 50 MG TEZACAFTOR/ 75 MG IVACAFTOR; 150 MG IVACAFTOR AT REGULAR DOSAGE REGIMEN
     Route: 048
     Dates: start: 20200801

REACTIONS (32)
  - Atrial flutter [Recovering/Resolving]
  - Blood potassium decreased [Unknown]
  - Blood calcium increased [Unknown]
  - Mycobacterium avium complex infection [Recovered/Resolved]
  - Bronchiectasis [Recovering/Resolving]
  - Fatigue [Recovering/Resolving]
  - Thinking abnormal [Recovering/Resolving]
  - Paraesthesia [Recovering/Resolving]
  - Joint swelling [Unknown]
  - Asthenia [Unknown]
  - Heart rate decreased [Recovering/Resolving]
  - Nausea [Recovered/Resolved]
  - Abdominal distension [Unknown]
  - Wheezing [Not Recovered/Not Resolved]
  - Abdominal pain [Unknown]
  - Headache [Unknown]
  - Diarrhoea [Unknown]
  - Atrial fibrillation [Unknown]
  - Constipation [Not Recovered/Not Resolved]
  - Dehydration [Unknown]
  - Presyncope [Not Recovered/Not Resolved]
  - Fall [Recovered/Resolved]
  - Tachycardia [Not Recovered/Not Resolved]
  - Retching [Not Recovered/Not Resolved]
  - Vomiting [Recovered/Resolved]
  - Pain [Not Recovered/Not Resolved]
  - Ear discomfort [Recovered/Resolved]
  - Cough [Recovered/Resolved]
  - Respiratory tract congestion [Unknown]
  - Gastrooesophageal reflux disease [Unknown]
  - Urinary tract infection [Unknown]
  - Dizziness [Not Recovered/Not Resolved]

NARRATIVE: CASE EVENT DATE: 20200101
